FAERS Safety Report 24009364 (Version 3)
Quarter: 2024Q3

REPORT INFORMATION
  Report Type: Spontaneous
  Country: BR (occurrence: None)
  Receive Date: 20240625
  Receipt Date: 20240806
  Transmission Date: 20241016
  Serious: Yes (Hospitalization, Other)
  Sender: ASTRAZENECA
  Company Number: 2024A143595

PATIENT
  Age: 81 Year
  Sex: Female
  Weight: 68 kg

DRUGS (1)
  1. IMFINZI [Suspect]
     Active Substance: DURVALUMAB
     Indication: Lung adenocarcinoma
     Dosage: 10.0MG/KG UNKNOWN
     Route: 042
     Dates: start: 20230613

REACTIONS (2)
  - Nervous system disorder [Unknown]
  - Metastases to central nervous system [Not Recovered/Not Resolved]

NARRATIVE: CASE EVENT DATE: 20240610
